FAERS Safety Report 6811240-6 (Version None)
Quarter: 2010Q2

REPORT INFORMATION
  Report Type: 
  Country: None (occurrence: None)
  Receive Date: 20100630
  Receipt Date: 20090909
  Transmission Date: 20101027
  Serious: No
  Sender: FDA-Public Use
  Company Number: US-AMGEN-KDL364158

PATIENT
  Sex: Male
  Weight: 153.5 kg

DRUGS (19)
  1. PROCRIT [Suspect]
     Indication: RENAL FAILURE CHRONIC
     Route: 058
     Dates: start: 20081001
  2. CATAPRES [Concomitant]
     Route: 062
  3. LOTREL [Concomitant]
  4. BENICAR [Concomitant]
  5. ALISKIREN [Concomitant]
  6. TOPROL-XL [Concomitant]
  7. CARDURA [Concomitant]
  8. HYDRALAZINE HCL [Concomitant]
  9. UNSPECIFIED MEDICATION [Concomitant]
  10. METOLAZONE [Concomitant]
  11. POTASSIUM CHLORIDE [Concomitant]
  12. LANTUS [Concomitant]
     Route: 058
  13. ANADIN [Concomitant]
  14. CALCICHEW [Concomitant]
  15. NEURONTIN [Concomitant]
  16. ZEMPLAR [Concomitant]
  17. INDOMETHACIN [Concomitant]
  18. VICODIN [Concomitant]
     Route: 048
  19. VIAGRA [Concomitant]

REACTIONS (1)
  - PAIN IN EXTREMITY [None]
